FAERS Safety Report 10453170 (Version 1)
Quarter: 2014Q3

REPORT INFORMATION
  Report Type: Spontaneous
  Country: SK (occurrence: SK)
  Receive Date: 20140915
  Receipt Date: 20140915
  Transmission Date: 20150326
  Serious: Yes (Death, Hospitalization)
  Sender: FDA-Public Use
  Company Number: SK-GLAXOSMITHKLINE-B1032801A

PATIENT
  Age: 44 Year
  Sex: Male

DRUGS (1)
  1. RYTHMOL [Suspect]
     Active Substance: PROPAFENONE HYDROCHLORIDE
     Indication: SUICIDAL IDEATION
     Dosage: 300MG SEE DOSAGE TEXT
     Dates: end: 199807

REACTIONS (4)
  - Completed suicide [Fatal]
  - Ventricular fibrillation [Fatal]
  - Poisoning [Fatal]
  - Ventricular tachycardia [Fatal]

NARRATIVE: CASE EVENT DATE: 199807
